FAERS Safety Report 10538763 (Version 4)
Quarter: 2014Q4

REPORT INFORMATION
  Report Type: Spontaneous
  Country: US (occurrence: US)
  Receive Date: 20141023
  Receipt Date: 20141210
  Transmission Date: 20150529
  Serious: Yes (Death, Hospitalization)
  Sender: FDA-Public Use
  Company Number: US-ACTELION-A-US2014-106606

PATIENT
  Age: 70 Year
  Sex: Male

DRUGS (2)
  1. DILTIAZEM [Concomitant]
     Active Substance: DILTIAZEM
  2. VELETRI [Suspect]
     Active Substance: EPOPROSTENOL
     Indication: COR PULMONALE CHRONIC
     Dosage: 51 NG/KG, PER MIN
     Route: 042
     Dates: start: 20130917

REACTIONS (6)
  - Ascites [Unknown]
  - Generalised oedema [Unknown]
  - Paracentesis [Unknown]
  - Death [Fatal]
  - Viral infection [Unknown]
  - Fluid retention [Unknown]

NARRATIVE: CASE EVENT DATE: 20141130
